FAERS Safety Report 10210240 (Version 1)
Quarter: 2014Q2

REPORT INFORMATION
  Report Type: Spontaneous
  Country: US (occurrence: None)
  Receive Date: 20140530
  Receipt Date: 20140530
  Transmission Date: 20141212
  Serious: No
  Sender: FDA-Public Use
  Company Number: None

PATIENT
  Age: 70 Year
  Sex: Female

DRUGS (14)
  1. FORTEO [Suspect]
     Indication: OSTEOPOROSIS
     Route: 058
     Dates: start: 20140212
  2. LEXAPRO [Concomitant]
  3. LOSARTAN [Concomitant]
  4. AMBIEN [Concomitant]
  5. SYNTHROID [Concomitant]
  6. OMEPRAZOLE [Concomitant]
  7. METFORMIN [Concomitant]
  8. REGLAN [Concomitant]
  9. SPIRIVA [Concomitant]
  10. VITAMIN D3 [Concomitant]
  11. FISH OIL [Concomitant]
  12. CALCIUM [Suspect]
  13. ASPIRIN [Suspect]
  14. B100 [Concomitant]

REACTIONS (2)
  - Depression [None]
  - Ankle fracture [None]
